FAERS Safety Report 14774349 (Version 1)
Quarter: 2018Q2

REPORT INFORMATION
  Report Type: Spontaneous
  Country: BR (occurrence: BR)
  Receive Date: 20180418
  Receipt Date: 20180418
  Transmission Date: 20180711
  Serious: Yes (Hospitalization)
  Sender: FDA-Public Use
  Company Number: BR-BAYER-2018-073606

PATIENT
  Age: 72 Year
  Sex: Male

DRUGS (1)
  1. ASPIRINA 100 MG [Suspect]
     Active Substance: ASPIRIN
     Indication: CORONARY ARTERY DISEASE
     Dosage: 100 MG, QD (AFTER LUNCH)
     Route: 048
     Dates: start: 20171009

REACTIONS (1)
  - Angina unstable [Recovering/Resolving]

NARRATIVE: CASE EVENT DATE: 20180202
